FAERS Safety Report 23704114 (Version 1)
Quarter: 2024Q2

REPORT INFORMATION
  Report Type: Spontaneous
  Country: FR (occurrence: FR)
  Receive Date: 20240403
  Receipt Date: 20240403
  Transmission Date: 20240715
  Serious: Yes (Hospitalization, Other)
  Sender: FDA-Public Use
  Company Number: FR-EMA-DD-20240328-7482707-131629

PATIENT
  Age: 46 Year
  Sex: Male

DRUGS (3)
  1. MYCOPHENOLATE MOFETIL [Suspect]
     Active Substance: MYCOPHENOLATE MOFETIL
     Indication: Immunosuppression
     Dosage: 3 G, QD
     Route: 065
     Dates: start: 2011, end: 2011
  2. CYCLOSPORINE [Concomitant]
     Active Substance: CYCLOSPORINE
     Indication: Immunosuppression
     Dosage: LOW-DOSE CYCLOSPORINE
     Route: 065
     Dates: start: 2011
  3. PREDNISONE [Concomitant]
     Active Substance: PREDNISONE
     Indication: Immunosuppression
     Dosage: 10 MG, QD
     Route: 065
     Dates: start: 2011

REACTIONS (1)
  - Coxsackie viral infection [Unknown]
